FAERS Safety Report 9344015 (Version 1)
Quarter: 2013Q2

REPORT INFORMATION
  Report Type: Spontaneous
  Country: US (occurrence: US)
  Receive Date: 20130612
  Receipt Date: 20130612
  Transmission Date: 20140414
  Serious: No
  Sender: FDA-Public Use
  Company Number: US-PFIZER INC-2013174268

PATIENT
  Age: 83 Year
  Sex: Male
  Weight: 74.83 kg

DRUGS (1)
  1. FLAGYL [Suspect]
     Indication: CROHN^S DISEASE
     Dosage: 250 MG, 3X/DAY
     Route: 048
     Dates: start: 20130122, end: 20130123

REACTIONS (1)
  - Myalgia [Not Recovered/Not Resolved]
